FAERS Safety Report 8006775-7 (Version None)
Quarter: 2011Q4

REPORT INFORMATION
  Report Type: 
  Country: None (occurrence: None)
  Receive Date: 20111227
  Receipt Date: 20111214
  Transmission Date: 20120403
  Serious: No
  Sender: FDA-Public Use
  Company Number: US-BAYER-2011-121707

PATIENT
  Sex: Male

DRUGS (3)
  1. LEVITRA [Suspect]
  2. ACETAMINOPHEN AND HYDROCODONE BITARTRATE [Concomitant]
  3. LYRICA [Concomitant]

REACTIONS (2)
  - NASAL DRYNESS [None]
  - DRUG INEFFECTIVE [None]
